FAERS Safety Report 6244308-6 (Version None)
Quarter: 2009Q2

REPORT INFORMATION
  Report Type: 
  Country: None (occurrence: None)
  Receive Date: 20090623
  Receipt Date: 20090623
  Transmission Date: 20091009
  Serious: No
  Sender: FDA-Public Use
  Company Number: None

PATIENT
  Age: 68 Year
  Sex: Female
  Weight: 80.7403 kg

DRUGS (1)
  1. AMARYL [Suspect]
     Indication: DIABETES MELLITUS
     Dosage: 4 MG DAILY ORAL
     Route: 048
     Dates: start: 20090520, end: 20090525

REACTIONS (6)
  - AGITATION [None]
  - INITIAL INSOMNIA [None]
  - PAIN [None]
  - PANIC REACTION [None]
  - PSYCHOMOTOR HYPERACTIVITY [None]
  - RESTLESSNESS [None]
